FAERS Safety Report 17241671 (Version 1)
Quarter: 2020Q1

REPORT INFORMATION
  Report Type: Spontaneous
  Country: US (occurrence: US)
  Receive Date: 20200107
  Receipt Date: 20200107
  Transmission Date: 20200409
  Serious: Yes (Hospitalization, Other)
  Sender: FDA-Public Use
  Company Number: US-PFIZER INC-2020002077

PATIENT
  Age: 67 Year
  Sex: Male

DRUGS (1)
  1. TIKOSYN [Suspect]
     Active Substance: DOFETILIDE
     Dosage: 250 UG, 2X/DAY
     Route: 048
     Dates: start: 20100607

REACTIONS (5)
  - Supraventricular tachycardia [Recovered/Resolved with Sequelae]
  - Atrial fibrillation [Unknown]
  - Myocardial infarction [Recovered/Resolved with Sequelae]
  - Atrial flutter [Unknown]
  - Body height decreased [Unknown]

NARRATIVE: CASE EVENT DATE: 201010
